FAERS Safety Report 8597815-5 (Version None)
Quarter: 2012Q3

REPORT INFORMATION
  Report Type: 
  Country: None (occurrence: None)
  Receive Date: 20120816
  Receipt Date: 20120813
  Transmission Date: 20120928
  Serious: Yes (Other)
  Sender: FDA-Public Use
  Company Number: PHHY2012CA057951

PATIENT
  Sex: Female

DRUGS (4)
  1. ZOLEDRONOC ACID [Suspect]
     Route: 042
     Dates: start: 20110808
  2. ZOLEDRONOC ACID [Suspect]
     Route: 042
     Dates: start: 20100806
  3. ZOLEDRONOC ACID [Suspect]
     Indication: OSTEOPOROSIS
     Route: 042
     Dates: start: 20080708
  4. ZOLEDRONOC ACID [Suspect]
     Route: 042
     Dates: start: 20090806

REACTIONS (4)
  - SPINAL COMPRESSION FRACTURE [None]
  - THORACIC VERTEBRAL FRACTURE [None]
  - FALL [None]
  - SPINAL DISORDER [None]
